FAERS Safety Report 4705844-4 (Version None)
Quarter: 2005Q2

REPORT INFORMATION
  Report Type: 
  Country: None (occurrence: None)
  Receive Date: 20050629
  Receipt Date: 20050311
  Transmission Date: 20051028
  Serious: Yes (Hospitalization)
  Sender: FDA-Public Use
  Company Number: 05P-163-0293703-00

PATIENT
  Age: 41 Year
  Sex: Female
  Weight: 81.6475 kg

DRUGS (2)
  1. HUMIRA [Suspect]
     Indication: RHEUMATOID ARTHRITIS
     Dosage: 40 MG, 1 IN 1 WK, SUBCUTANEOUS
     Route: 058
     Dates: start: 20040101, end: 20050201
  2. METHOTREXATE [Concomitant]

REACTIONS (2)
  - INJECTION SITE PAIN [None]
  - THROMBOSIS [None]
